FAERS Safety Report 9445795 (Version 2)
Quarter: 2013Q3

REPORT INFORMATION
  Report Type: Spontaneous
  Country: US (occurrence: US)
  Receive Date: 20130807
  Receipt Date: 20130919
  Transmission Date: 20140515
  Serious: Yes (Other)
  Sender: FDA-Public Use
  Company Number: PHHY2013US083802

PATIENT
  Age: 60 Year
  Sex: Male

DRUGS (10)
  1. BACLOFEN INTRATHECAL [Suspect]
     Indication: PAIN
     Dosage: UNK UKN, UNK
     Route: 037
  2. BACLOFEN INTRATHECAL [Suspect]
     Dosage: 17.771 UG/DAY
     Route: 037
  3. TRAMADOL [Suspect]
     Indication: PAIN
     Dosage: UNK UKN, UNK
     Route: 048
  4. CLONIDINE [Suspect]
     Dosage: UNK UKN, UNK
     Route: 037
  5. CLONIDINE [Suspect]
     Dosage: 13.328 UG/DAY
     Route: 037
  6. MORPHINE [Suspect]
     Indication: PAIN
     Dosage: UNK UKN, UNK
     Route: 037
  7. MORPHINE [Suspect]
     Dosage: 2.221 MG/DAY
     Route: 037
  8. BUPIVACAINE [Suspect]
     Indication: PAIN
     Dosage: UNK UKN, UNK
     Route: 037
  9. BUPIVACAINE [Suspect]
     Dosage: 0.844 MG/DAY
     Route: 037
  10. LEVORPHANOL [Suspect]
     Indication: PAIN
     Dosage: UNK UKN, UNK
     Route: 048

REACTIONS (13)
  - Gait disturbance [Unknown]
  - Performance status decreased [Unknown]
  - Mobility decreased [Unknown]
  - Disturbance in attention [Recovering/Resolving]
  - Pain in extremity [Unknown]
  - Back pain [Unknown]
  - Nausea [Unknown]
  - Memory impairment [Recovering/Resolving]
  - Vomiting [Unknown]
  - Pain [Unknown]
  - No therapeutic response [Unknown]
  - Drug withdrawal syndrome [Unknown]
  - Overdose [Unknown]
